FAERS Safety Report 24241232 (Version 4)
Quarter: 2024Q4

REPORT INFORMATION
  Report Type: Spontaneous
  Country: JP (occurrence: JP)
  Receive Date: 20240823
  Receipt Date: 20241223
  Transmission Date: 20250114
  Serious: Yes (Other)
  Sender: ALK-ABELLO
  Company Number: JP-ALK-ABELLO A/S-2024AA003209

PATIENT

DRUGS (5)
  1. MITICURE [Suspect]
     Active Substance: DERMATOPHAGOIDES FARINAE\DERMATOPHAGOIDES PTERONYSSINUS
     Indication: Asthma
     Dosage: 3300 JAU, QD
     Route: 060
     Dates: start: 20240403, end: 20240409
  2. MITICURE [Suspect]
     Active Substance: DERMATOPHAGOIDES FARINAE\DERMATOPHAGOIDES PTERONYSSINUS
     Indication: Rhinitis allergic
     Dosage: 10000 JAU, QD
     Route: 060
     Dates: start: 20240410, end: 202406
  3. WARFARIN [Concomitant]
     Active Substance: WARFARIN
     Route: 048
  4. FUROSEMIDE [Concomitant]
     Active Substance: FUROSEMIDE
  5. SPIRONOLACTONE [Concomitant]
     Active Substance: SPIRONOLACTONE
     Route: 048

REACTIONS (4)
  - Pericardial effusion [Recovered/Resolved]
  - Eosinophil count increased [Recovered/Resolved]
  - Chest discomfort [Unknown]
  - Off label use [Unknown]

NARRATIVE: CASE EVENT DATE: 20240501
